FAERS Safety Report 15407739 (Version 1)
Quarter: 2018Q3

REPORT INFORMATION
  Report Type: Spontaneous
  Country: US (occurrence: US)
  Receive Date: 20180920
  Receipt Date: 20180920
  Transmission Date: 20181010
  Serious: No
  Sender: FDA-Public Use
  Company Number: US-BAUSCH-BL-2017-031357

PATIENT
  Sex: Female

DRUGS (3)
  1. EFUDEX [Suspect]
     Active Substance: FLUOROURACIL
     Dosage: ON HER WHOLE FACE
     Route: 061
     Dates: start: 201701
  2. EFUDEX [Suspect]
     Active Substance: FLUOROURACIL
     Indication: ACTINIC KERATOSIS
     Dosage: EIGHT MONTHS PRIOR
     Route: 061
     Dates: start: 2017
  3. EFUDEX [Suspect]
     Active Substance: FLUOROURACIL
     Dosage: ON HER WHOLE FACE
     Route: 061
     Dates: start: 201702, end: 2017

REACTIONS (1)
  - Precancerous cells present [Unknown]

NARRATIVE: CASE EVENT DATE: 2017
